FAERS Safety Report 23737325 (Version 2)
Quarter: 2024Q2

REPORT INFORMATION
  Report Type: Spontaneous
  Country: US (occurrence: US)
  Receive Date: 20240412
  Receipt Date: 20240517
  Transmission Date: 20240716
  Serious: Yes (Hospitalization)
  Sender: FDA-Public Use
  Company Number: US-PARI RESPIRATORY EQUIPMENT, INC.-2024PAR00032

PATIENT
  Age: 4 Year
  Sex: Female
  Weight: 9.478 kg

DRUGS (3)
  1. KITABIS PAK [Suspect]
     Active Substance: TOBRAMYCIN
     Indication: Pseudomonas infection
     Dosage: INHALE 1 AMPULE (300 MG) VIA NEBULIZER TWICE A DAY FOR 2 WEEKS ON AND 2 WEEKS OFF
  2. KITABIS PAK [Suspect]
     Active Substance: TOBRAMYCIN
     Indication: Burkholderia mallei infection
  3. KITABIS PAK [Suspect]
     Active Substance: TOBRAMYCIN
     Indication: Burkholderia pseudomallei infection

REACTIONS (2)
  - Vascular device infection [Unknown]
  - Off label use [Not Recovered/Not Resolved]

NARRATIVE: CASE EVENT DATE: 20240301
